FAERS Safety Report 9898919 (Version 4)
Quarter: 2015Q3

REPORT INFORMATION
  Report Type: Other
  Country: GB (occurrence: GB)
  Receive Date: 20140214
  Receipt Date: 20150702
  Transmission Date: 20151125
  Serious: Yes (Life-Threatening, Other)
  Sender: FDA-Public Use
  Company Number: GB-LUNDBECK-DKLU1097430

PATIENT
  Age: 10 Month
  Sex: Female

DRUGS (2)
  1. TETRACOSACTIDE [Concomitant]
     Active Substance: COSYNTROPIN
     Indication: INFANTILE SPASMS
  2. VIGABATRIN (FOR ORAL SOLUTION) [Suspect]
     Active Substance: VIGABATRIN
     Indication: INFANTILE SPASMS
     Route: 048

REACTIONS (2)
  - Hemiparesis [Unknown]
  - Encephalopathy [Recovered/Resolved]
